FAERS Safety Report 5008025-2 (Version None)
Quarter: 2006Q2

REPORT INFORMATION
  Report Type: 
  Country: None (occurrence: None)
  Receive Date: 20060404
  Receipt Date: 20050506
  Transmission Date: 20061013
  Serious: Yes (Other)
  Sender: FDA-Public Use
  Company Number: 2005072193

PATIENT
  Sex: 0

DRUGS (1)
  1. GEODON [Suspect]
     Dosage: 160 MG

REACTIONS (1)
  - PULMONARY THROMBOSIS [None]
